FAERS Safety Report 4618630-0 (Version None)
Quarter: 2005Q1

REPORT INFORMATION
  Report Type: 
  Country: None (occurrence: None)
  Receive Date: 20050324
  Receipt Date: 20050308
  Transmission Date: 20050727
  Serious: Yes (Death, Hospitalization)
  Sender: FDA-Public Use
  Company Number: USA050392604

PATIENT
  Age: 91 Year
  Sex: Female

DRUGS (1)
  1. FORTEO [Suspect]
     Dosage: 20 UG/L DAY
     Dates: start: 20050101

REACTIONS (3)
  - INTESTINAL OBSTRUCTION [None]
  - MULTI-ORGAN FAILURE [None]
  - PHARMACEUTICAL PRODUCT COMPLAINT [None]
